FAERS Safety Report 17333345 (Version 1)
Quarter: 2020Q1

REPORT INFORMATION
  Report Type: Spontaneous
  Country: SE (occurrence: SE)
  Receive Date: 20200128
  Receipt Date: 20200128
  Transmission Date: 20200409
  Serious: Yes (Hospitalization)
  Sender: FDA-Public Use
  Company Number: SE-MYLANLABS-2020M1010239

PATIENT
  Sex: Female

DRUGS (4)
  1. PARAFLEX [Suspect]
     Active Substance: CHLORZOXAZONE
     Indication: PRODUCT USED FOR UNKNOWN INDICATION
     Dosage: KL 22
     Route: 048
     Dates: start: 20190728, end: 20190728
  2. ALIMEMAZINE [Suspect]
     Active Substance: TRIMEPRAZINE
     Indication: PRODUCT USED FOR UNKNOWN INDICATION
     Dosage: 3X20 MG KL 21
     Route: 048
     Dates: start: 20190728, end: 20190728
  3. ALVEDON [Suspect]
     Active Substance: ACETAMINOPHEN
     Indication: PRODUCT USED FOR UNKNOWN INDICATION
     Dosage: KL 00
     Route: 048
     Dates: start: 20190728, end: 20190728
  4. LERGIGAN (PROMETHAZINE HYDROCHLORIDE) [Suspect]
     Active Substance: PROMETHAZINE HYDROCHLORIDE
     Indication: PRODUCT USED FOR UNKNOWN INDICATION
     Dosage: 2X25 MG KL 19 OCH 3X25 MG KL 23
     Route: 048
     Dates: start: 20190728, end: 20190728

REACTIONS (5)
  - Pollakiuria [Unknown]
  - Accidental overdose [Unknown]
  - Eye disorder [Unknown]
  - Headache [Unknown]
  - Hypoaesthesia [Unknown]

NARRATIVE: CASE EVENT DATE: 201907
